FAERS Safety Report 5655574-X (Version None)
Quarter: 2008Q1

REPORT INFORMATION
  Report Type: 
  Country: None (occurrence: None)
  Receive Date: 20080212
  Receipt Date: 20070716
  Transmission Date: 20080703
  Serious: Yes (Life-Threatening, Hospitalization, Other)
  Sender: FDA-Public Use
  Company Number: MC200700515

PATIENT
  Age: 58 Year
  Sex: Female
  Weight: 65 kg

DRUGS (3)
  1. ANGIOMAX [Suspect]
     Indication: ANTICOAGULANT THERAPY
     Dosage: 23 ML, HR, INTRAVENOUS ; 49 MG, INTRAVENOUS
     Route: 042
     Dates: start: 20070119, end: 20070129
  2. ANGIOMAX [Suspect]
     Indication: ANTICOAGULANT THERAPY
     Dosage: 23 ML, HR, INTRAVENOUS ; 49 MG, INTRAVENOUS
     Route: 042
     Dates: start: 20070129, end: 20070129
  3. INVESTIGATIONAL DRUG [Concomitant]

REACTIONS (3)
  - CHEST PAIN [None]
  - CORONARY ARTERY THROMBOSIS [None]
  - MYOCARDIAL INFARCTION [None]
